FAERS Safety Report 23158570 (Version 1)
Quarter: 2023Q4

REPORT INFORMATION
  Report Type: Spontaneous
  Country: US (occurrence: None)
  Receive Date: 20231106
  Receipt Date: 20231106
  Transmission Date: 20240110
  Serious: No
  Sender: FDA-Public Use
  Company Number: None

PATIENT
  Sex: Female

DRUGS (9)
  1. CAPECITABINE [Suspect]
     Active Substance: CAPECITABINE
     Indication: Breast cancer female
     Dosage: 500  MG ORAL??TAKE 3 TABLETS IN THE MORNING AND 4 TABLETS IN THE EVENING, ON DAYS 1 THROUGH 14, FOLL
     Route: 048
     Dates: start: 20230524
  2. CAPECITABINE [Suspect]
     Active Substance: CAPECITABINE
     Dosage: OTHER FREQUENCY : 4T E D1-14, 7D OFF;?
     Route: 048
  3. BENADRYL ALG [Concomitant]
  4. BIOTIN [Concomitant]
     Active Substance: BIOTIN
  5. CALTRATE + D3 [Concomitant]
  6. COLACE [Concomitant]
     Active Substance: DOCUSATE SODIUM
  7. FULVESTRANT [Concomitant]
     Active Substance: FULVESTRANT
  8. IBUPROFEN [Concomitant]
     Active Substance: IBUPROFEN
  9. TYLENOL PM [Concomitant]
     Active Substance: ACETAMINOPHEN\DIPHENHYDRAMINE

REACTIONS (4)
  - Pain in extremity [None]
  - Headache [None]
  - Tumour marker increased [None]
  - Malignant neoplasm progression [None]
